FAERS Safety Report 6579010-4 (Version None)
Quarter: 2010Q1

REPORT INFORMATION
  Report Type: 
  Country: None (occurrence: None)
  Receive Date: 20100212
  Receipt Date: 20100201
  Transmission Date: 20100710
  Serious: Yes (Hospitalization, Other)
  Sender: FDA-Public Use
  Company Number: FR-JNJFOC-20100201759

PATIENT
  Age: 74 Year
  Sex: Male

DRUGS (9)
  1. REMICADE [Suspect]
     Indication: PSORIASIS
     Route: 042
  2. REMICADE [Suspect]
     Route: 042
  3. ENBREL [Suspect]
     Indication: PSORIASIS
  4. ZANIDIP [Concomitant]
  5. COZAAR [Concomitant]
  6. LANTUS [Concomitant]
  7. NOVORAPID [Concomitant]
  8. BECILAN [Concomitant]
     Dosage: DOSE EXPRESSED AS ^DF^
  9. DAFALGAN [Concomitant]
     Dosage: DOSE NOTED AS 500

REACTIONS (8)
  - ABDOMINAL PAIN [None]
  - ANTIPHOSPHOLIPID SYNDROME [None]
  - BORDETELLA INFECTION [None]
  - CANDIDIASIS [None]
  - LUNG DISORDER [None]
  - MYELODYSPLASTIC SYNDROME [None]
  - PERTUSSIS [None]
  - VOMITING [None]
